FAERS Safety Report 11254695 (Version 1)
Quarter: 2015Q3

REPORT INFORMATION
  Report Type: Spontaneous
  Country: US (occurrence: None)
  Receive Date: 20150708
  Receipt Date: 20150708
  Transmission Date: 20151125
  Serious: Yes (Disabling, Other)
  Sender: FDA-Public Use
  Company Number: None

PATIENT
  Age: 58 Year
  Sex: Male
  Weight: 99.79 kg

DRUGS (8)
  1. METFORMIN [Concomitant]
     Active Substance: METFORMIN HYDROCHLORIDE
  2. HUMIRA [Suspect]
     Active Substance: ADALIMUMAB
     Indication: RHEUMATOID ARTHRITIS
     Dosage: BY INJECTION
     Route: 042
     Dates: start: 201312, end: 20140829
  3. PREDNISONE. [Concomitant]
     Active Substance: PREDNISONE
  4. COMBIVENT [Concomitant]
     Active Substance: ALBUTEROL SULFATE\IPRATROPIUM BROMIDE
  5. VITAMIN E [Concomitant]
     Active Substance: .ALPHA.-TOCOPHEROL
  6. OXYCODONE [Concomitant]
     Active Substance: OXYCODONE
  7. VITAMIN D [Concomitant]
     Active Substance: CHOLECALCIFEROL
  8. TYLENOL [Concomitant]
     Active Substance: ACETAMINOPHEN

REACTIONS (8)
  - Local swelling [None]
  - Lung neoplasm malignant [None]
  - Skin ulcer [None]
  - Necrosis [None]
  - Neck mass [None]
  - Speech disorder [None]
  - Lung disorder [None]
  - Hyporeflexia [None]

NARRATIVE: CASE EVENT DATE: 20140829
